FAERS Safety Report 18329821 (Version 1)
Quarter: 2020Q3

REPORT INFORMATION
  Report Type: Spontaneous
  Country: US (occurrence: US)
  Receive Date: 20200930
  Receipt Date: 20200930
  Transmission Date: 20201103
  Serious: No
  Sender: FDA-Public Use
  Company Number: US-BEH-2020122650

PATIENT
  Sex: Female

DRUGS (2)
  1. PRIVIGEN [Suspect]
     Active Substance: HUMAN IMMUNOGLOBULIN G
     Indication: ENCEPHALOMYELITIS
  2. PRIVIGEN [Suspect]
     Active Substance: HUMAN IMMUNOGLOBULIN G
     Indication: ENCEPHALITIS
     Dosage: 60 GRAM,( 2 DAYS EVERY 4 WEEKS) QMT
     Route: 042
     Dates: start: 202007

REACTIONS (5)
  - Headache [Unknown]
  - No adverse event [Unknown]
  - Product use in unapproved indication [Unknown]
  - Urine output decreased [Unknown]
  - Illness [Unknown]
